FAERS Safety Report 24918284 (Version 2)
Quarter: 2025Q1

REPORT INFORMATION
  Report Type: Spontaneous
  Country: US (occurrence: US)
  Receive Date: 20250203
  Receipt Date: 20250220
  Transmission Date: 20250409
  Serious: No
  Sender: PFIZER
  Company Number: US-PFIZER INC-PV202500013354

PATIENT
  Age: 81 Year
  Sex: Female

DRUGS (22)
  1. DIFLUCAN [Suspect]
     Active Substance: FLUCONAZOLE
  2. TYLENOL [Concomitant]
     Active Substance: ACETAMINOPHEN
  3. VITAMIN C [Concomitant]
     Active Substance: ASCORBIC ACID
  4. VITAMIN B COMPLEX [Concomitant]
     Active Substance: CYANOCOBALAMIN\DEXPANTHENOL\NIACINAMIDE\PYRIDOXINE HYDROCHLORIDE\RIBOFLAVIN 5^-PHOSPHATE SODIUM\THIA
  5. CALCIUM CARBONATE [Concomitant]
     Active Substance: CALCIUM CARBONATE
     Route: 048
  6. CLINDAMYCIN [Concomitant]
     Active Substance: CLINDAMYCIN
  7. EPINEPHRINE [Concomitant]
     Active Substance: EPINEPHRINE
  8. ZETIA [Concomitant]
     Active Substance: EZETIMIBE
  9. PEPCID [Concomitant]
     Active Substance: FAMOTIDINE
  10. ULORIC [Concomitant]
     Active Substance: FEBUXOSTAT
  11. FEXOFENADINE [Concomitant]
     Active Substance: FEXOFENADINE HYDROCHLORIDE
  12. FLONASE SENSIMIST ALLERGY RELIEF [Concomitant]
     Active Substance: FLUTICASONE FUROATE
  13. ADVAIR HFA [Concomitant]
     Active Substance: FLUTICASONE PROPIONATE\SALMETEROL XINAFOATE
  14. LASIX [Concomitant]
     Active Substance: FUROSEMIDE
  15. DUONEB [Concomitant]
     Active Substance: ALBUTEROL SULFATE\IPRATROPIUM BROMIDE
  16. FENOTEROL HYDROBROMIDE [Concomitant]
     Active Substance: FENOTEROL HYDROBROMIDE
  17. XOPENEX [Concomitant]
     Active Substance: LEVALBUTEROL HYDROCHLORIDE
  18. XOPENEX HFA [Concomitant]
     Active Substance: LEVALBUTEROL TARTRATE
  19. LEVOTHYROXINE [Concomitant]
     Active Substance: LEVOTHYROXINE
  20. XOLAIR [Concomitant]
     Active Substance: OMALIZUMAB
  21. ZINGA [ZINC SULFATE] [Concomitant]
     Route: 048
  22. ALLOPURINOL [Concomitant]
     Active Substance: ALLOPURINOL

REACTIONS (1)
  - Rash [Unknown]

NARRATIVE: CASE EVENT DATE: 20080512
